FAERS Safety Report 4265864-3 (Version None)
Quarter: 2004Q1

REPORT INFORMATION
  Report Type: 
  Country: None (occurrence: None)
  Receive Date: 20040107
  Receipt Date: 20040107
  Transmission Date: 20041129
  Serious: Yes (Other)
  Sender: FDA-Public Use
  Company Number: None

PATIENT
  Age: 41 Year
  Sex: Female
  Weight: 106.5953 kg

DRUGS (1)
  1. VANCOMYCIN [Suspect]
     Indication: LOCALISED INFECTION
     Dosage: 1 G IV Q12 H
     Route: 042
     Dates: start: 20031025, end: 20031106

REACTIONS (2)
  - BODY TEMPERATURE INCREASED [None]
  - RASH GENERALISED [None]
